FAERS Safety Report 7678763-1 (Version None)
Quarter: 2011Q3

REPORT INFORMATION
  Report Type: 
  Country: None (occurrence: None)
  Receive Date: 20110811
  Receipt Date: 20110803
  Transmission Date: 20111222
  Serious: Yes (Other)
  Sender: FDA-Public Use
  Company Number: US-MILLENNIUM PHARMACEUTICALS, INC.-2011-03399

PATIENT
  Age: 57 Year
  Sex: Male
  Weight: 88 kg

DRUGS (1)
  1. VELCADE [Suspect]
     Dosage: 0.75 MG/M2, CYCLIC
     Route: 040
     Dates: start: 20100517

REACTIONS (1)
  - DEPRESSION [None]
